FAERS Safety Report 20092307 (Version 1)
Quarter: 2021Q4

REPORT INFORMATION
  Report Type: Spontaneous
  Country: HU (occurrence: HU)
  Receive Date: 20211119
  Receipt Date: 20211119
  Transmission Date: 20220303
  Serious: Yes (Death)
  Sender: FDA-Public Use
  Company Number: HU-Merck Healthcare KGaA-9281282

PATIENT
  Age: 59 Year
  Sex: Female

DRUGS (1)
  1. BAVENCIO [Suspect]
     Active Substance: AVELUMAB
     Indication: Neuroendocrine carcinoma of the skin
     Route: 042

REACTIONS (4)
  - COVID-19 pneumonia [Fatal]
  - Cardiac failure [Fatal]
  - Disease progression [Fatal]
  - Infusion related reaction [Recovered/Resolved]
